FAERS Safety Report 11070661 (Version 1)
Quarter: 2020Q3

REPORT INFORMATION
  Report Type: Report from Study
  Country: PL (occurrence: PL)
  Receive Date: 20150427
  Receipt Date: 20150427
  Transmission Date: 20201104
  Serious: Yes (Other)
  Sender: FDA-Public Use
  Company Number: PL-JNJFOC-20130907679

PATIENT
  Age: 59 Year
  Sex: Male
  Weight: 93.5 kg

DRUGS (49)
  1. BENDAMUSTINE HYDROCHLORIDE. [Suspect]
     Active Substance: BENDAMUSTINE HYDROCHLORIDE
     Indication: CHRONIC LYMPHOCYTIC LEUKAEMIA
     Route: 042
     Dates: start: 20130830
  2. NEULASTA [Concomitant]
     Active Substance: PEGFILGRASTIM
     Indication: NEUTROPENIA
     Route: 058
  3. PARACETAMOL [Concomitant]
     Active Substance: ACETAMINOPHEN
     Indication: URINARY TRACT INFECTION
     Route: 048
     Dates: start: 20130321
  4. PARACETAMOL [Concomitant]
     Active Substance: ACETAMINOPHEN
     Indication: PREMEDICATION
     Route: 048
     Dates: start: 20130307
  5. IBUPROFEN. [Concomitant]
     Active Substance: IBUPROFEN
     Indication: SPINAL OSTEOARTHRITIS
     Route: 048
  6. LACIDOFIL [Concomitant]
     Indication: CLOSTRIDIUM DIFFICILE INFECTION
     Dates: start: 20130321
  7. LACIDOFIL [Concomitant]
     Indication: RESPIRATORY TRACT INFECTION
     Dates: start: 20130301
  8. LACIDOFIL [Concomitant]
     Indication: INFECTION
     Dates: start: 20130301
  9. DICLOFENAC [Concomitant]
     Active Substance: DICLOFENAC
     Indication: HEADACHE
     Route: 048
  10. ATOSSA [Concomitant]
     Indication: INFECTION
     Route: 048
  11. PARACETAMOL [Concomitant]
     Active Substance: ACETAMINOPHEN
     Indication: INFECTION
     Route: 048
  12. KETOPROFEN. [Concomitant]
     Active Substance: KETOPROFEN
     Indication: SPINAL OSTEOARTHRITIS
     Route: 048
  13. LACIDOFIL [Concomitant]
     Indication: CLOSTRIDIUM DIFFICILE INFECTION
     Dates: start: 20130422
  14. LACIDOFIL [Concomitant]
     Indication: INFECTION
  15. GLICLAZIDE [Concomitant]
     Active Substance: GLICLAZIDE
     Route: 048
  16. NYSTATIN. [Concomitant]
     Active Substance: NYSTATIN
     Route: 048
  17. CLEMASTIN [Concomitant]
     Active Substance: CLEMASTINE
     Indication: PREMEDICATION
     Route: 042
  18. CONTROLOC [Concomitant]
     Active Substance: PANTOPRAZOLE SODIUM
     Indication: INFECTION
     Route: 048
     Dates: start: 20130321
  19. KETOPROFEN. [Concomitant]
     Active Substance: KETOPROFEN
     Indication: SPINAL OSTEOARTHRITIS
     Route: 048
  20. TRANSTEC [Concomitant]
     Active Substance: BUPRENORPHINE
     Indication: SPINAL OSTEOARTHRITIS
     Route: 061
  21. BENDAMUSTINE HYDROCHLORIDE. [Suspect]
     Active Substance: BENDAMUSTINE HYDROCHLORIDE
     Indication: CHRONIC LYMPHOCYTIC LEUKAEMIA
     Route: 042
     Dates: start: 20130228
  22. RITUXIMAB. [Suspect]
     Active Substance: RITUXIMAB
     Indication: CHRONIC LYMPHOCYTIC LEUKAEMIA
     Route: 042
     Dates: start: 20130227
  23. LAMIVUDINE. [Concomitant]
     Active Substance: LAMIVUDINE
     Route: 048
  24. ATOSSA [Concomitant]
     Indication: INFECTION
     Route: 048
  25. MILURIT [Concomitant]
     Active Substance: ALLOPURINOL
     Route: 048
  26. LACIDOFIL [Concomitant]
     Indication: CLOSTRIDIUM DIFFICILE INFECTION
  27. LACIDOFIL [Concomitant]
     Indication: RESPIRATORY TRACT INFECTION
     Dates: start: 20130321
  28. LACIDOFIL [Concomitant]
     Indication: RESPIRATORY TRACT INFECTION
     Dates: start: 20130422
  29. METFORMIN [Concomitant]
     Active Substance: METFORMIN HYDROCHLORIDE
     Route: 048
  30. PARACETAMOL [Concomitant]
     Active Substance: ACETAMINOPHEN
     Indication: URINARY TRACT INFECTION
     Route: 048
     Dates: start: 20130307
  31. NYSTATIN. [Concomitant]
     Active Substance: NYSTATIN
     Route: 048
  32. CLEMASTIN [Concomitant]
     Active Substance: CLEMASTINE
     Indication: PREMEDICATION
     Route: 042
  33. LACIDOFIL [Concomitant]
     Indication: RESPIRATORY TRACT INFECTION
  34. LACIDOFIL [Concomitant]
     Indication: INFECTION
     Dates: start: 20130321
  35. NEULASTA [Concomitant]
     Active Substance: PEGFILGRASTIM
     Indication: NEUTROPENIA
     Route: 058
  36. PARACETAMOL [Concomitant]
     Active Substance: ACETAMINOPHEN
     Indication: INFECTION
     Route: 048
     Dates: start: 20130307
  37. PARACETAMOL [Concomitant]
     Active Substance: ACETAMINOPHEN
     Indication: INFECTION
     Route: 048
     Dates: start: 20130321
  38. LACIDOFIL [Concomitant]
     Indication: CLOSTRIDIUM DIFFICILE INFECTION
     Dates: start: 20130301
  39. IBRUTINIB [Suspect]
     Active Substance: IBRUTINIB
     Route: 048
  40. ALLOPURINOL. [Concomitant]
     Active Substance: ALLOPURINOL
     Route: 048
  41. PARACETAMOL [Concomitant]
     Active Substance: ACETAMINOPHEN
     Indication: URINARY TRACT INFECTION
     Route: 048
  42. PARACETAMOL [Concomitant]
     Active Substance: ACETAMINOPHEN
     Indication: PREMEDICATION
     Route: 048
  43. DEXAVEN [Concomitant]
     Active Substance: DEXAMETHASONE
     Indication: PREMEDICATION
     Route: 042
  44. CONTROLOC [Concomitant]
     Active Substance: PANTOPRAZOLE SODIUM
     Indication: INFECTION
     Route: 048
  45. LACIDOFIL [Concomitant]
     Indication: INFECTION
     Dates: start: 20130422
  46. IBRUTINIB [Suspect]
     Active Substance: IBRUTINIB
     Indication: CHRONIC LYMPHOCYTIC LEUKAEMIA
     Route: 048
     Dates: start: 20130228, end: 20130906
  47. TRANDOLAPRIL. [Concomitant]
     Active Substance: TRANDOLAPRIL
     Route: 048
  48. NEULASTA [Concomitant]
     Active Substance: PEGFILGRASTIM
     Indication: NEUTROPENIA
     Route: 058
  49. PARACETAMOL [Concomitant]
     Active Substance: ACETAMINOPHEN
     Indication: PREMEDICATION
     Route: 048
     Dates: start: 20130321

REACTIONS (1)
  - Vitreous haemorrhage [Recovered/Resolved with Sequelae]

NARRATIVE: CASE EVENT DATE: 20130907
